FAERS Safety Report 23973574 (Version 2)
Quarter: 2024Q2

REPORT INFORMATION
  Report Type: Spontaneous
  Country: DE (occurrence: DE)
  Receive Date: 20240613
  Receipt Date: 20240618
  Transmission Date: 20240715
  Serious: Yes (Hospitalization)
  Sender: FDA-Public Use
  Company Number: DE-BAUSCHBL-2024BNL028041

PATIENT
  Age: 10 Year
  Sex: Female

DRUGS (1)
  1. CYCLOPENTOLATE [Suspect]
     Active Substance: CYCLOPENTOLATE
     Indication: Diagnostic procedure
     Dosage: TWO DROPS IN THE RIGHT EYE AND TWO IN THE LEFT EYE 20 MINUTES APART
     Route: 047
     Dates: start: 20240513

REACTIONS (11)
  - Hospitalisation [Unknown]
  - Headache [Recovered/Resolved]
  - Sleep disorder [Unknown]
  - Disturbance in attention [Unknown]
  - Hypersensitivity [Unknown]
  - Somnolence [Recovered/Resolved]
  - Disorientation [Recovered/Resolved]
  - Dizziness [Recovered/Resolved]
  - Visual impairment [Unknown]
  - Photophobia [Unknown]
  - Expired product administered [Unknown]

NARRATIVE: CASE EVENT DATE: 20240101
